FAERS Safety Report 13942287 (Version 1)
Quarter: 2017Q3

REPORT INFORMATION
  Report Type: Spontaneous
  Country: US (occurrence: None)
  Receive Date: 20170907
  Receipt Date: 20170907
  Transmission Date: 20171127
  Serious: No
  Sender: FDA-Public Use
  Company Number: None

PATIENT
  Age: 56 Year
  Sex: Female

DRUGS (2)
  1. BUPROPION XL 150MG [Suspect]
     Active Substance: BUPROPION
     Indication: TOBACCO ABUSE
  2. BUPROPION XL 150MG [Suspect]
     Active Substance: BUPROPION
     Indication: TOBACCO USER

REACTIONS (2)
  - Product substitution issue [None]
  - Drug ineffective [None]
